FAERS Safety Report 21994761 (Version 2)
Quarter: 2023Q1

REPORT INFORMATION
  Report Type: Spontaneous
  Country: US (occurrence: US)
  Receive Date: 20230215
  Receipt Date: 20230216
  Transmission Date: 20230417
  Serious: No
  Sender: FDA-Public Use
  Company Number: US-PFIZER INC-PV202300029238

PATIENT

DRUGS (1)
  1. PRISTIQ EXTENDED-RELEASE [Suspect]
     Active Substance: DESVENLAFAXINE SUCCINATE
     Dosage: 25 MG

REACTIONS (5)
  - Withdrawal syndrome [Unknown]
  - Nausea [Unknown]
  - Retching [Unknown]
  - Insomnia [Unknown]
  - Feeling abnormal [Unknown]
